FAERS Safety Report 24904805 (Version 1)
Quarter: 2025Q1

REPORT INFORMATION
  Report Type: Report from Study
  Country: CA (occurrence: CA)
  Receive Date: 20250130
  Receipt Date: 20250130
  Transmission Date: 20250408
  Serious: Yes (Other)
  Sender: BIOCON
  Company Number: CA-MYLANLABS-2022M1082432

PATIENT

DRUGS (4)
  1. HULIO [Suspect]
     Active Substance: ADALIMUMAB-FKJP
     Indication: Rheumatoid arthritis
     Route: 065
  2. HULIO [Suspect]
     Active Substance: ADALIMUMAB-FKJP
     Route: 058
     Dates: start: 20210705
  3. HULIO [Suspect]
     Active Substance: ADALIMUMAB-FKJP
     Route: 058
     Dates: start: 20220201
  4. HULIO [Suspect]
     Active Substance: ADALIMUMAB-FKJP
     Route: 058
     Dates: start: 20210705

REACTIONS (11)
  - Dental operation [Unknown]
  - Breast mass [Unknown]
  - Illness [Unknown]
  - Disease progression [Unknown]
  - COVID-19 [Recovered/Resolved]
  - Mobility decreased [Unknown]
  - Memory impairment [Unknown]
  - Pain [Unknown]
  - Malaise [Unknown]
  - Dyspnoea [Unknown]
  - Therapy interrupted [Unknown]
